FAERS Safety Report 10671475 (Version 2)
Quarter: 2015Q1

REPORT INFORMATION
  Report Type: Spontaneous
  Country: FI (occurrence: FI)
  Receive Date: 20141223
  Receipt Date: 20150317
  Transmission Date: 20150720
  Serious: Yes (Hospitalization)
  Sender: FDA-Public Use
  Company Number: FI-NOVOPROD-433046

PATIENT
  Age: 64 Year
  Sex: Male
  Weight: 110 kg

DRUGS (9)
  1. METFOREM [Concomitant]
     Active Substance: METFORMIN HYDROCHLORIDE
     Indication: TYPE 2 DIABETES MELLITUS
     Dosage: 1.5 G, QD
     Route: 048
  2. AMARYL [Concomitant]
     Active Substance: GLIMEPIRIDE
     Indication: TYPE 2 DIABETES MELLITUS
     Dosage: 2 MG, QD
     Route: 048
  3. HYDREX                             /00022001/ [Concomitant]
     Indication: BLOOD PRESSURE ABNORMAL
     Dosage: 1 TAB QD
     Route: 048
  4. SIMVASTATIN. [Concomitant]
     Active Substance: SIMVASTATIN
     Indication: HYPERCHOLESTEROLAEMIA
     Dosage: 40 MG, QD
     Route: 048
  5. LANZOPRAZOL [Concomitant]
     Active Substance: LANSOPRAZOLE
     Indication: GASTROOESOPHAGEAL REFLUX DISEASE
     Dosage: 30 MG, QD
     Route: 048
  6. COVERAM [Concomitant]
     Active Substance: AMLODIPINE\PERINDOPRIL
     Indication: BLOOD PRESSURE ABNORMAL
     Dosage: 1 TAB QD (10/10)
     Route: 048
  7. ASA [Concomitant]
     Active Substance: ASPIRIN
     Indication: CORONARY ARTERY DISEASE
     Dosage: 100 MG, QD
     Route: 048
  8. EMCONCOR [Concomitant]
     Active Substance: BISOPROLOL FUMARATE
     Indication: CORONARY ARTERY DISEASE
     Dosage: 30 MG, QD
     Route: 048
  9. VICTOZA [Suspect]
     Active Substance: LIRAGLUTIDE
     Indication: TYPE 2 DIABETES MELLITUS
     Dosage: 1.8 MG, QD
     Route: 058
     Dates: start: 201409, end: 20141021

REACTIONS (3)
  - Cardiac failure [Not Recovered/Not Resolved]
  - Atrial fibrillation [Not Recovered/Not Resolved]
  - Nausea [Not Recovered/Not Resolved]

NARRATIVE: CASE EVENT DATE: 20141021
